FAERS Safety Report 5708734-3 (Version None)
Quarter: 2008Q2

REPORT INFORMATION
  Report Type: 
  Country: None (occurrence: None)
  Receive Date: 20080409
  Receipt Date: 20050429
  Transmission Date: 20081010
  Serious: Yes (Life-Threatening)
  Sender: FDA-Public Use
  Company Number: WSDF_00475

PATIENT
  Age: 17 Year
  Sex: Female

DRUGS (2)
  1. WINRHO SDF [Suspect]
     Indication: RHESUS INCOMPATIBILITY
     Dosage: 300 MCG ONCE;
     Dates: start: 20050424, end: 20050424
  2. EMPRACET [Concomitant]

REACTIONS (9)
  - DRUG EXPOSURE DURING PREGNANCY [None]
  - DYSPNOEA [None]
  - EYE OEDEMA [None]
  - HYPERSENSITIVITY [None]
  - MUSCLE SPASMS [None]
  - PANIC ATTACK [None]
  - PHARYNGEAL OEDEMA [None]
  - SUFFOCATION FEELING [None]
  - UNRESPONSIVE TO STIMULI [None]
